FAERS Safety Report 11832557 (Version 2)
Quarter: 2016Q1

REPORT INFORMATION
  Report Type: Spontaneous
  Country: PT (occurrence: PT)
  Receive Date: 20151214
  Receipt Date: 20160212
  Transmission Date: 20160525
  Serious: Yes (Death, Hospitalization, Other)
  Sender: FDA-Public Use
  Company Number: PT-ACTELION-A-CH2015-128335

PATIENT
  Age: 18 Year
  Sex: Male
  Weight: 45 kg

DRUGS (11)
  1. OPSUMIT [Suspect]
     Active Substance: MACITENTAN
     Indication: PULMONARY HYPERTENSION
     Dosage: 10 MG, OD
     Route: 048
     Dates: start: 201511, end: 20151203
  2. BUDESONIDE. [Concomitant]
     Active Substance: BUDESONIDE
  3. WARFARIN [Concomitant]
     Active Substance: WARFARIN
  4. ALOPURINOL [Concomitant]
     Active Substance: ALLOPURINOL
  5. TRACLEER [Suspect]
     Active Substance: BOSENTAN
     Indication: PULMONARY HYPERTENSION
     Dosage: UNK
     Route: 048
     Dates: start: 201102
  6. ENALAPRIL [Concomitant]
     Active Substance: ENALAPRIL
  7. SILDENAFIL. [Concomitant]
     Active Substance: SILDENAFIL
  8. FUROSEMIDE. [Concomitant]
     Active Substance: FUROSEMIDE
  9. FLUCLOXACILLIN [Concomitant]
     Active Substance: FLUCLOXACILLIN
  10. GENTAMICIN. [Concomitant]
     Active Substance: GENTAMICIN
  11. AMINOFILIN [Concomitant]

REACTIONS (13)
  - Multiple organ dysfunction syndrome [Unknown]
  - Cardiac failure [Fatal]
  - Cellulitis [Unknown]
  - Lung infection [Unknown]
  - Atrioventricular dissociation [Fatal]
  - Protein-losing gastroenteropathy [Unknown]
  - Hepatic congestion [Unknown]
  - Hepatic enzyme increased [Unknown]
  - Blood bilirubin increased [Unknown]
  - Renal failure [Unknown]
  - Hypersensitivity [Unknown]
  - Respiratory arrest [Fatal]
  - Cardiac function disturbance postoperative [Fatal]

NARRATIVE: CASE EVENT DATE: 2012
